FAERS Safety Report 6882521-5 (Version None)
Quarter: 2010Q3

REPORT INFORMATION
  Report Type: 
  Country: None (occurrence: None)
  Receive Date: 20100702
  Receipt Date: 20100319
  Transmission Date: 20110219
  Serious: Yes (Other)
  Sender: FDA-Public Use
  Company Number: 228606USA

PATIENT
  Age: 74 Year
  Sex: Female

DRUGS (4)
  1. ATENOLOL [Suspect]
     Indication: HEART RATE IRREGULAR
     Dosage: 50 MG (50 MG, 1 IN 1 D), ORAL
     Route: 048
  2. INSULIN GLARGINE [Suspect]
     Indication: TYPE 2 DIABETES MELLITUS
     Dosage: 100 IU/ML (15 IU, 1 IN 1 D), SUBCUTANEOUS ; 10 IU (10 IU, 1 IN 1 D), PARENTERAL
     Route: 058
     Dates: start: 20000101
  3. INSULIN GLARGINE [Suspect]
     Indication: TYPE 2 DIABETES MELLITUS
     Dosage: 100 IU/ML (15 IU, 1 IN 1 D), SUBCUTANEOUS ; 10 IU (10 IU, 1 IN 1 D), PARENTERAL
     Route: 058
     Dates: start: 20000101
  4. OPTICLICK [Suspect]
     Indication: TYPE 2 DIABETES MELLITUS
     Dosage: DAILY
     Dates: start: 20040101

REACTIONS (2)
  - BLOOD GLUCOSE INCREASED [None]
  - RENAL IMPAIRMENT [None]
